FAERS Safety Report 22241642 (Version 1)
Quarter: 2023Q2

REPORT INFORMATION
  Report Type: Spontaneous
  Country: ES (occurrence: ES)
  Receive Date: 20230421
  Receipt Date: 20230421
  Transmission Date: 20230722
  Serious: Yes (Hospitalization, Other)
  Sender: FDA-Public Use
  Company Number: ES-002147023-NVSC2022ES232877

PATIENT
  Age: 63 Year
  Sex: Male

DRUGS (1)
  1. GILENYA [Suspect]
     Active Substance: FINGOLIMOD HYDROCHLORIDE
     Indication: Multiple sclerosis
     Dosage: 0.5 MG, QMO
     Route: 065
     Dates: start: 201407, end: 202209

REACTIONS (4)
  - Multiple sclerosis relapse [Unknown]
  - Thrombosis [Unknown]
  - Urinary incontinence [Unknown]
  - Hypoaesthesia [Unknown]
